FAERS Safety Report 14178778 (Version 1)
Quarter: 2017Q4

REPORT INFORMATION
  Report Type: Other
  Country: None (occurrence: GB)
  Receive Date: 20171110
  Receipt Date: 20171110
  Transmission Date: 20180321
  Serious: Yes (Hospitalization, Other)
  Sender: FDA-Public Use
  Company Number: GB-LUPIN PHARMACEUTICALS INC.-2017-06495

PATIENT

DRUGS (3)
  1. SERTRALINE [Suspect]
     Active Substance: SERTRALINE HYDROCHLORIDE
     Dosage: 100 MG (UNSPECIFIED INTERVAL)
     Route: 065
  2. SERTRALINE [Suspect]
     Active Substance: SERTRALINE HYDROCHLORIDE
     Indication: PRODUCT USED FOR UNKNOWN INDICATION
     Dosage: 100 MG (UNSPECIFIED INTERVAL)
     Route: 065
  3. SERTRALINE [Suspect]
     Active Substance: SERTRALINE HYDROCHLORIDE
     Dosage: 75 MG (UNSPECIFIED INTERVAL)
     Route: 065

REACTIONS (30)
  - Suicidal ideation [Not Recovered/Not Resolved]
  - Depersonalisation/derealisation disorder [Not Recovered/Not Resolved]
  - Balance disorder [Unknown]
  - Panic reaction [Not Recovered/Not Resolved]
  - Food intolerance [Unknown]
  - Speech disorder [Unknown]
  - Paraesthesia [Unknown]
  - Pain of skin [Unknown]
  - Agitation [Unknown]
  - Tunnel vision [Unknown]
  - Hallucination [Not Recovered/Not Resolved]
  - Vitreous floaters [Unknown]
  - Photophobia [Unknown]
  - Loss of personal independence in daily activities [Not Recovered/Not Resolved]
  - Derealisation [Unknown]
  - Hypoacusis [Unknown]
  - Withdrawal syndrome [Unknown]
  - Sleep terror [Not Recovered/Not Resolved]
  - Asthenia [Not Recovered/Not Resolved]
  - Vertigo [Unknown]
  - Blood glucose fluctuation [Not Recovered/Not Resolved]
  - Suicidal behaviour [Not Recovered/Not Resolved]
  - Mental impairment [Unknown]
  - Skin burning sensation [Not Recovered/Not Resolved]
  - Intrusive thoughts [Not Recovered/Not Resolved]
  - Visual impairment [Unknown]
  - Eye pain [Unknown]
  - Confusional state [Unknown]
  - Fear [Not Recovered/Not Resolved]
  - Akathisia [Unknown]

NARRATIVE: CASE EVENT DATE: 2014
